FAERS Safety Report 11751919 (Version 2)
Quarter: 2016Q2

REPORT INFORMATION
  Report Type: Spontaneous
  Country: US (occurrence: US)
  Receive Date: 20151118
  Receipt Date: 20160520
  Transmission Date: 20160815
  Serious: No
  Sender: FDA-Public Use
  Company Number: US-MDT-ADR-2015-02187

PATIENT
  Age: 25 Year
  Sex: Female

DRUGS (14)
  1. POTASSIUM [Suspect]
     Active Substance: POTASSIUM
     Route: 065
  2. BACLOFEN. [Suspect]
     Active Substance: BACLOFEN
     Dosage: 130.92 MCG/DAY
     Route: 037
     Dates: start: 20110114, end: 20151201
  3. ZOFRAN [Suspect]
     Active Substance: ONDANSETRON HYDROCHLORIDE
     Route: 065
  4. VITAMIN D [Suspect]
     Active Substance: CHOLECALCIFEROL
     Route: 065
  5. OMNICEF [Suspect]
     Active Substance: CEFDINIR
     Route: 065
  6. OXYBUTYNIN [Suspect]
     Active Substance: OXYBUTYNIN
     Route: 065
  7. CALCIUM [Suspect]
     Active Substance: CALCIUM
     Route: 065
  8. OTHER VITAMINS [Suspect]
     Active Substance: VITAMINS
     Route: 065
  9. OTHER MEDICATION [Suspect]
     Active Substance: UNSPECIFIED INGREDIENT
     Route: 065
  10. BACLOFEN. [Suspect]
     Active Substance: BACLOFEN
     Route: 065
  11. IBUPROFEN. [Suspect]
     Active Substance: IBUPROFEN
     Route: 065
  12. SERTRALINE [Suspect]
     Active Substance: SERTRALINE HYDROCHLORIDE
     Route: 065
  13. BACLOFEN. [Suspect]
     Active Substance: BACLOFEN
     Route: 037
     Dates: start: 20110831
  14. FERROUS SULFATE. [Suspect]
     Active Substance: FERROUS SULFATE
     Route: 065

REACTIONS (9)
  - Back pain [Unknown]
  - Hypoaesthesia [Unknown]
  - Adverse drug reaction [Unknown]
  - Fatigue [Unknown]
  - Rash [Unknown]
  - Dizziness [Unknown]
  - Night sweats [Unknown]
  - Therapeutic response decreased [Unknown]
  - Muscle tightness [Unknown]

NARRATIVE: CASE EVENT DATE: 2011
